FAERS Safety Report 8236478-5 (Version None)
Quarter: 2012Q1

REPORT INFORMATION
  Report Type: 
  Country: None (occurrence: None)
  Receive Date: 20120327
  Receipt Date: 20120323
  Transmission Date: 20120608
  Serious: No
  Sender: FDA-Public Use
  Company Number: US-TEVA-329768USA

PATIENT
  Sex: Female

DRUGS (2)
  1. ENJUVIA [Suspect]
     Indication: HYSTERECTOMY
     Route: 048
     Dates: start: 20120201
  2. ESTRADIOL [Concomitant]

REACTIONS (2)
  - CRYING [None]
  - DEPRESSED MOOD [None]
